FAERS Safety Report 12925903 (Version 1)
Quarter: 2016Q4

REPORT INFORMATION
  Report Type: Report from Study
  Country: ZA (occurrence: ZA)
  Receive Date: 20161109
  Receipt Date: 20161109
  Transmission Date: 20170207
  Serious: Yes (Death, Hospitalization, Other)
  Sender: FDA-Public Use
  Company Number: ZA-AMGEN-ZAFSL2016154982

PATIENT
  Age: 71 Year
  Sex: Female

DRUGS (1)
  1. ARANESP [Suspect]
     Active Substance: DARBEPOETIN ALFA
     Indication: NEPHROGENIC ANAEMIA
     Dosage: 20 MUG, QWK
     Route: 065
     Dates: start: 201502, end: 201608

REACTIONS (1)
  - Cardiac failure [Fatal]

NARRATIVE: CASE EVENT DATE: 201608
